FAERS Safety Report 5530165-X (Version None)
Quarter: 2007Q4

REPORT INFORMATION
  Report Type: 
  Country: None (occurrence: None)
  Receive Date: 20071128
  Receipt Date: 20071128
  Transmission Date: 20080405
  Serious: Yes (Other)
  Sender: FDA-Public Use
  Company Number: None

PATIENT
  Age: 87 Year
  Sex: Female
  Weight: 64 kg

DRUGS (1)
  1. MEPERIDINE HCL [Suspect]
     Indication: PROCEDURAL PAIN
     Dosage: 25MG PRN IV
     Route: 042
     Dates: start: 20071024

REACTIONS (3)
  - INFUSION RELATED REACTION [None]
  - INFUSION SITE ERYTHEMA [None]
  - PRURITUS [None]
